FAERS Safety Report 24169358 (Version 6)
Quarter: 2024Q3

REPORT INFORMATION
  Report Type: Report from Study
  Country: CA (occurrence: CA)
  Receive Date: 20240802
  Receipt Date: 20240919
  Transmission Date: 20241016
  Serious: Yes (Other)
  Sender: NOVARTIS
  Company Number: CA-002147023-NVSC2024CA115340

PATIENT
  Age: 40 Year
  Sex: Female

DRUGS (4)
  1. COSENTYX [Suspect]
     Active Substance: SECUKINUMAB
     Indication: Psoriasis
     Dosage: 300 MG, WEEKS 0, 1, 2, 3, AND 4,
     Route: 058
     Dates: start: 20240514
  2. COSENTYX [Suspect]
     Active Substance: SECUKINUMAB
     Dosage: 300 MG, QMO
     Route: 058
  3. COSENTYX [Suspect]
     Active Substance: SECUKINUMAB
     Dosage: UNK
     Route: 058
     Dates: start: 20240711
  4. COSENTYX [Suspect]
     Active Substance: SECUKINUMAB
     Dosage: 300 MG, QMO
     Route: 058
     Dates: start: 20240813

REACTIONS (20)
  - Ovarian cyst ruptured [Unknown]
  - Pertussis [Recovering/Resolving]
  - Pain [Not Recovered/Not Resolved]
  - Scratch [Unknown]
  - Haemorrhage [Recovering/Resolving]
  - Pruritus [Unknown]
  - Pyrexia [Not Recovered/Not Resolved]
  - Injury [Unknown]
  - Dysphonia [Unknown]
  - Ingrown hair [Unknown]
  - Facial pain [Recovering/Resolving]
  - Psoriasis [Unknown]
  - Malaise [Unknown]
  - Discouragement [Unknown]
  - Skin plaque [Not Recovered/Not Resolved]
  - Pain of skin [Unknown]
  - Burning sensation [Unknown]
  - Discomfort [Unknown]
  - Dizziness [Unknown]
  - Dyspnoea [Unknown]

NARRATIVE: CASE EVENT DATE: 20240501
